FAERS Safety Report 4842634-6 (Version None)
Quarter: 2005Q4

REPORT INFORMATION
  Report Type: 
  Country: None (occurrence: None)
  Receive Date: 20051201
  Receipt Date: 20051129
  Transmission Date: 20060501
  Serious: Yes (Life-Threatening)
  Sender: FDA-Public Use
  Company Number: FI-GLAXOSMITHKLINE-B0402181A

PATIENT
  Age: 52 Year
  Sex: Female

DRUGS (5)
  1. LAMICTAL [Suspect]
     Indication: MAJOR DEPRESSION
     Dosage: 200MG PER DAY
     Route: 048
     Dates: start: 20050830
  2. LEPONEX [Suspect]
     Indication: MAJOR DEPRESSION
     Dosage: 150MG PER DAY
     Route: 048
     Dates: start: 20051025
  3. TEMESTA [Concomitant]
     Indication: ANXIETY
  4. CIPRALEX [Concomitant]
     Indication: MAJOR DEPRESSION
  5. MOVICOL [Concomitant]
     Indication: CONSTIPATION

REACTIONS (3)
  - ANTIPSYCHOTIC DRUG LEVEL INCREASED [None]
  - HYPERSOMNIA [None]
  - SOMNOLENCE [None]
